FAERS Safety Report 5266026-3 (Version None)
Quarter: 2007Q1

REPORT INFORMATION
  Report Type: 
  Country: None (occurrence: None)
  Receive Date: 20070313
  Receipt Date: 20070313
  Transmission Date: 20070707
  Serious: No
  Sender: FDA-Public Use
  Company Number: None

PATIENT
  Age: 33 Year
  Sex: Male
  Weight: 86.1834 kg

DRUGS (1)
  1. CEFTIN [Suspect]
     Indication: EAR INFECTION
     Dosage: 2 TEASPOONS TWICE A DAY PO
     Route: 048
     Dates: start: 20070306, end: 20070309

REACTIONS (6)
  - ASTHENIA [None]
  - DIARRHOEA [None]
  - FATIGUE [None]
  - HAEMORRHOIDS [None]
  - IMPAIRED WORK ABILITY [None]
  - MUSCLE SPASMS [None]
